FAERS Safety Report 25667326 (Version 2)
Quarter: 2025Q3

REPORT INFORMATION
  Report Type: Report from Study
  Country: JP (occurrence: JP)
  Receive Date: 20250811
  Receipt Date: 20250818
  Transmission Date: 20251021
  Serious: Yes (Death, Life-Threatening, Hospitalization)
  Sender: PFIZER
  Company Number: JP-PFIZER INC-PV202400156292

PATIENT
  Age: 80 Year
  Sex: Male
  Weight: 67.2 kg

DRUGS (3)
  1. ELRANATAMAB [Suspect]
     Active Substance: ELRANATAMAB
     Indication: Plasma cell myeloma
     Dosage: (DOSE: 12, UNITS: UNKNOWN), 1X/DAY
     Dates: start: 20240917, end: 20240917
  2. ELRANATAMAB [Suspect]
     Active Substance: ELRANATAMAB
     Dosage: (DOSE: 32, UNITS: UNKNOWN), 1X/DAY
     Dates: start: 20240920, end: 20240920
  3. ELRANATAMAB [Suspect]
     Active Substance: ELRANATAMAB
     Dosage: (DOSE: 76, UNITS: UNKNOWN), WEEKLY
     Dates: start: 20241003, end: 20241017

REACTIONS (3)
  - Plasma cell myeloma [Fatal]
  - Malignant neoplasm progression [Fatal]
  - Immune effector cell-associated neurotoxicity syndrome [Recovered/Resolved]

NARRATIVE: CASE EVENT DATE: 20241017
